FAERS Safety Report 7773142-0 (Version None)
Quarter: 2011Q3

REPORT INFORMATION
  Report Type: 
  Country: None (occurrence: None)
  Receive Date: 20110922
  Receipt Date: 20101027
  Transmission Date: 20111222
  Serious: No
  Sender: FDA-Public Use
  Company Number: US-ASTRAZENECA-2010SE51001

PATIENT
  Age: 51 Year
  Sex: Female

DRUGS (5)
  1. SEROQUEL XR [Suspect]
     Route: 048
     Dates: start: 20100101
  2. SEROQUEL XR [Suspect]
     Route: 048
     Dates: start: 20100101
  3. SEROQUEL XR [Suspect]
     Indication: AFFECTIVE DISORDER
     Route: 048
     Dates: start: 20100101
  4. SEROQUEL XR [Suspect]
     Route: 048
     Dates: start: 20100101
  5. SEROQUEL XR [Suspect]
     Route: 048
     Dates: start: 20100101

REACTIONS (3)
  - SALIVARY HYPERSECRETION [None]
  - AGGRESSION [None]
  - DYSKINESIA [None]
